FAERS Safety Report 4560934-4 (Version None)
Quarter: 2005Q1

REPORT INFORMATION
  Report Type: 
  Country: None (occurrence: None)
  Receive Date: 20050126
  Receipt Date: 20040129
  Transmission Date: 20050727
  Serious: No
  Sender: FDA-Public Use
  Company Number: US-BRISTOL-MYERS SQUIBB COMPANY-12491767

PATIENT
  Age: 66 Year
  Sex: Female
  Weight: 59 kg

DRUGS (5)
  1. GLUCOPHAGE [Suspect]
     Indication: DIABETES MELLITUS
     Route: 048
     Dates: start: 20040124
  2. AVANDIA [Concomitant]
  3. PRAVACHOL [Concomitant]
  4. NIASPAN [Concomitant]
  5. ASPIRIN [Concomitant]

REACTIONS (1)
  - DIARRHOEA [None]
